FAERS Safety Report 10769140 (Version 1)
Quarter: 2015Q1

REPORT INFORMATION
  Report Type: Other
  Country: PT (occurrence: PT)
  Receive Date: 20150206
  Receipt Date: 20150206
  Transmission Date: 20150721
  Serious: Yes (Other)
  Sender: FDA-Public Use
  Company Number: PT-MYLANLABS-2015M1002628

PATIENT

DRUGS (6)
  1. SERTRALINE [Suspect]
     Active Substance: SERTRALINE HYDROCHLORIDE
     Indication: DEPRESSION
     Route: 048
     Dates: start: 20140609, end: 20141231
  2. BROMOCRIPTINA [Concomitant]
     Active Substance: BROMOCRIPTINE
     Indication: HYPERPROLACTINAEMIA
     Dosage: 1.25 MG, QD
     Route: 048
     Dates: start: 20130722
  3. LORAZEPAM CINFA 2,5 MG COMPRIMIDOS [Concomitant]
     Indication: INSOMNIA
     Dosage: 2.5 MG, QD
     Route: 048
     Dates: start: 20110526
  4. ADT [Concomitant]
     Active Substance: AMITRIPTYLINE HYDROCHLORIDE
     Indication: INSOMNIA
     Dosage: 25 MG, QD
     Route: 048
     Dates: start: 20140203
  5. TANSULOSINA GP 0,4 MG C?PSULAS DE LIBERTA??O PROLONGADA [Concomitant]
     Indication: BENIGN PROSTATIC HYPERPLASIA
     Dosage: 0.4 MG, QD
     Route: 048
     Dates: start: 20140730
  6. EUTIROX [Concomitant]
     Active Substance: LEVOTHYROXINE SODIUM
     Indication: HORMONE REPLACEMENT THERAPY
     Dosage: 0.112 MG, QD
     Route: 048
     Dates: start: 20140729

REACTIONS (4)
  - Dysuria [Recovered/Resolved]
  - Epistaxis [Recovered/Resolved]
  - Semen volume decreased [Recovered/Resolved]
  - Semen liquefaction abnormal [Recovered/Resolved]

NARRATIVE: CASE EVENT DATE: 20141217
